FAERS Safety Report 21982307 (Version 1)
Quarter: 2023Q1

REPORT INFORMATION
  Report Type: Spontaneous
  Country: US (occurrence: US)
  Receive Date: 20230213
  Receipt Date: 20230213
  Transmission Date: 20230417
  Serious: No
  Sender: FDA-Public Use
  Company Number: US-AMGEN-USASP2022228780

PATIENT
  Sex: Female

DRUGS (1)
  1. OTEZLA [Suspect]
     Active Substance: APREMILAST
     Indication: Psoriatic arthropathy
     Dosage: UNK(10,20 AND 30 MILLIGRAM)
     Route: 048
     Dates: start: 20221020

REACTIONS (7)
  - Infection [Unknown]
  - Fungal infection [Unknown]
  - Skin irritation [Unknown]
  - Rash [Unknown]
  - Cough [Unknown]
  - Product dose omission issue [Unknown]
  - Fatigue [Unknown]
